FAERS Safety Report 4843493-8 (Version None)
Quarter: 2005Q4

REPORT INFORMATION
  Report Type: 
  Country: None (occurrence: None)
  Receive Date: 20051202
  Receipt Date: 20051107
  Transmission Date: 20060501
  Serious: Yes (Other)
  Sender: FDA-Public Use
  Company Number: PHBS2005JP16423

PATIENT
  Age: 74 Year
  Sex: Male

DRUGS (9)
  1. TEGRETOL [Suspect]
     Indication: CANCER PAIN
     Dosage: 100 MG/DAY
     Route: 048
     Dates: start: 20051102, end: 20051107
  2. TS 1 [Concomitant]
     Route: 048
  3. GASTER [Concomitant]
     Route: 048
  4. KLARICID [Concomitant]
     Route: 048
  5. RINDERON [Concomitant]
     Route: 048
  6. LOXONIN [Concomitant]
     Route: 048
  7. MUCOSTA [Concomitant]
     Route: 048
  8. CYANOCOBALAMIN [Concomitant]
     Route: 048
  9. MAGNESIUM OXIDE [Concomitant]
     Route: 048

REACTIONS (7)
  - ABNORMAL BEHAVIOUR [None]
  - ANGER [None]
  - CONFUSIONAL STATE [None]
  - DISTURBANCE IN ATTENTION [None]
  - DYSSTASIA [None]
  - INCOHERENT [None]
  - UNRESPONSIVE TO VERBAL STIMULI [None]
